FAERS Safety Report 16659677 (Version 1)
Quarter: 2019Q3

REPORT INFORMATION
  Report Type: Report from Study
  Country: JP (occurrence: JP)
  Receive Date: 20190802
  Receipt Date: 20190802
  Transmission Date: 20191004
  Serious: Yes (Other)
  Sender: FDA-Public Use
  Company Number: JP-CELLTRION INC.-2017JP011227

PATIENT

DRUGS (18)
  1. INFLIXIMAB BS FOR I.V. INFUSION100 MG [NK] [Suspect]
     Active Substance: INFLIXIMAB
     Dosage: 5 MG/BODY/DAY
     Route: 042
     Dates: start: 20161110, end: 20161110
  2. INFLIXIMAB BS FOR I.V. INFUSION100 MG [NK] [Suspect]
     Active Substance: INFLIXIMAB
     Dosage: 260 MG/BODY/DAY
     Route: 042
     Dates: start: 20160421, end: 20160421
  3. INFLIXIMAB BS FOR I.V. INFUSION100 MG [NK] [Suspect]
     Active Substance: INFLIXIMAB
     Dosage: 260 MG/BODY/DAY
     Route: 042
     Dates: start: 20160519, end: 20160519
  4. INFLIXIMAB BS FOR I.V. INFUSION100 MG [NK] [Suspect]
     Active Substance: INFLIXIMAB
     Dosage: 285 MG/BODY/DAY
     Route: 042
     Dates: start: 20160707, end: 20160707
  5. INFLIXIMAB BS FOR I.V. INFUSION100 MG [NK] [Suspect]
     Active Substance: INFLIXIMAB
     Dosage: 5 MG/BODY/DAY
     Route: 042
     Dates: start: 20160908, end: 20160908
  6. INFLIXIMAB BS FOR I.V. INFUSION100 MG [NK] [Suspect]
     Active Substance: INFLIXIMAB
     Dosage: 5 MG/BODY/DAY
     Route: 042
     Dates: start: 20170511, end: 20170511
  7. CEFTRIAXONE SODIUM HYDRATE [Concomitant]
     Active Substance: CEFTRIAXONE SODIUM
     Indication: PERITONITIS
     Dosage: 1 G, QD
     Dates: start: 20171121, end: 20171123
  8. MESALAZINE [Concomitant]
     Active Substance: MESALAMINE
     Indication: CROHN^S DISEASE
     Dosage: 500 MG, DAILY
     Dates: start: 20130826
  9. FLUMARIN [Concomitant]
     Indication: PERITONITIS
     Dosage: UNK
     Dates: start: 20171121, end: 20171123
  10. REMICADE [Concomitant]
     Active Substance: INFLIXIMAB
     Dosage: 100 MG, QD
     Dates: start: 20171130
  11. INFLIXIMAB BS FOR I.V. INFUSION100 MG [NK] [Suspect]
     Active Substance: INFLIXIMAB
     Dosage: 5 MG/BODY/DAY
     Route: 042
     Dates: start: 20170112, end: 20170112
  12. INFLIXIMAB BS FOR I.V. INFUSION100 MG [NK] [Suspect]
     Active Substance: INFLIXIMAB
     Dosage: 5 MG/BODY/DAY
     Route: 042
     Dates: start: 20170713, end: 20170713
  13. INFLIXIMAB BS FOR I.V. INFUSION100 MG [NK] [Suspect]
     Active Substance: INFLIXIMAB
     Dosage: 285 MG/BODY/DAY
     Route: 042
     Dates: start: 20171005, end: 20171005
  14. INFLIXIMAB BS FOR I.V. INFUSION100 MG [NK] [Suspect]
     Active Substance: INFLIXIMAB
     Dosage: 5 MG/BODY/DAY
     Route: 042
     Dates: start: 20170316, end: 20170316
  15. CIPROFLOXACIN. [Concomitant]
     Active Substance: CIPROFLOXACIN
     Indication: CROHN^S DISEASE
     Dosage: 200 MG, QD
     Dates: start: 20171005, end: 20171012
  16. FLUMARIN [Concomitant]
     Dosage: 1 G, QD
     Dates: start: 20171124, end: 20171130
  17. MESALAZINE [Concomitant]
     Active Substance: MESALAMINE
     Dosage: UNK
     Dates: start: 20171005, end: 20171012
  18. INFLIXIMAB BS FOR I.V. INFUSION100 MG [NK] [Suspect]
     Active Substance: INFLIXIMAB
     Indication: CROHN^S DISEASE
     Dosage: 260 MG/BODY/DAY
     Route: 042
     Dates: start: 20160407, end: 20160407

REACTIONS (5)
  - Cystitis [Recovered/Resolved]
  - Haematochezia [Unknown]
  - Erythema nodosum [Recovered/Resolved]
  - Inappropriate schedule of product administration [Unknown]
  - Abdominal pain [Recovering/Resolving]

NARRATIVE: CASE EVENT DATE: 20170713
